FAERS Safety Report 9277759 (Version 1)
Quarter: 2013Q2

REPORT INFORMATION
  Report Type: Report from Study
  Country: US (occurrence: US)
  Receive Date: 20130508
  Receipt Date: 20130508
  Transmission Date: 20140414
  Serious: Yes (Hospitalization)
  Sender: FDA-Public Use
  Company Number: PHEH2013US009795

PATIENT
  Age: 61 Year
  Sex: Female

DRUGS (1)
  1. TOBI [Suspect]
     Dosage: 1 DF, BID
     Dates: start: 2010

REACTIONS (2)
  - Pneumonia staphylococcal [Unknown]
  - Lung infection [Unknown]
